FAERS Safety Report 7144940-1 (Version None)
Quarter: 2010Q4

REPORT INFORMATION
  Report Type: 
  Country: None (occurrence: None)
  Receive Date: 20101208
  Receipt Date: 20101126
  Transmission Date: 20110411
  Serious: No
  Sender: FDA-Public Use
  Company Number: CA-JNJFOC-20100807323

PATIENT
  Age: 84 Year
  Sex: Female
  Weight: 53.7 kg

DRUGS (10)
  1. SIMPONI [Suspect]
     Indication: RHEUMATOID ARTHRITIS
     Route: 058
  2. METHOTREXATE [Concomitant]
     Indication: RHEUMATOID ARTHRITIS
     Route: 048
  3. FOLIC ACID [Concomitant]
     Indication: PROPHYLAXIS
     Route: 048
  4. MYOCHRYSINE [Concomitant]
     Indication: RHEUMATOID ARTHRITIS
     Route: 030
  5. ATENOLOL [Concomitant]
     Indication: HYPERTENSION
     Route: 048
  6. ZOCOR [Concomitant]
     Indication: HYPERCHOLESTEROLAEMIA
     Route: 048
  7. TYLENOL-500 [Concomitant]
     Indication: RHEUMATOID ARTHRITIS
     Route: 048
  8. PRILOSEC [Concomitant]
     Indication: DYSPEPSIA
     Route: 048
  9. OXAZEPAM [Concomitant]
     Indication: INSOMNIA
     Route: 048
  10. PREMARIN [Concomitant]
     Indication: POSTMENOPAUSE
     Route: 048

REACTIONS (3)
  - CHRONIC SINUSITIS [None]
  - ORAL PAIN [None]
  - PURPURA [None]
